FAERS Safety Report 16902459 (Version 1)
Quarter: 2019Q4

REPORT INFORMATION
  Report Type: Spontaneous
  Country: US (occurrence: US)
  Receive Date: 20191010
  Receipt Date: 20191010
  Transmission Date: 20200122
  Serious: No
  Sender: FDA-Public Use
  Company Number: US-TEVA-2019-US-1118707

PATIENT
  Sex: Female

DRUGS (1)
  1. DILTIAZEM TEVA [Suspect]
     Active Substance: DILTIAZEM

REACTIONS (1)
  - Oral mucosal blistering [Recovered/Resolved]
